FAERS Safety Report 20650036 (Version 1)
Quarter: 2022Q1

REPORT INFORMATION
  Report Type: Spontaneous
  Country: GB (occurrence: GB)
  Receive Date: 20220329
  Receipt Date: 20220329
  Transmission Date: 20220423
  Serious: Yes (Disabling, Other)
  Sender: FDA-Public Use
  Company Number: GB-MHRA-MED-202203180757291100-RL0X0

PATIENT
  Age: 42 Year
  Sex: Female

DRUGS (1)
  1. OXYCODONE HYDROCHLORIDE [Suspect]
     Active Substance: OXYCODONE HYDROCHLORIDE
     Indication: Pain
     Dosage: 5-10MG UP TO 5 TIMES
     Route: 065

REACTIONS (4)
  - Gastrointestinal stoma output increased [Not Recovered/Not Resolved]
  - Abdominal pain upper [Recovering/Resolving]
  - Bile output [Not Recovered/Not Resolved]
  - Urticaria [Recovered/Resolved with Sequelae]

NARRATIVE: CASE EVENT DATE: 20220101
